FAERS Safety Report 13496049 (Version 4)
Quarter: 2017Q3

REPORT INFORMATION
  Report Type: Spontaneous
  Country: US (occurrence: US)
  Receive Date: 20170428
  Receipt Date: 20170713
  Transmission Date: 20171127
  Serious: Yes (Other)
  Sender: FDA-Public Use
  Company Number: US-GLAXOSMITHKLINE-US2017058850

PATIENT
  Age: 45 Year
  Sex: Female
  Weight: 91.2 kg

DRUGS (2)
  1. NUCALA [Suspect]
     Active Substance: MEPOLIZUMAB
     Indication: PRODUCT USED FOR UNKNOWN INDICATION
     Dosage: 1 DF, UNK
     Route: 042
     Dates: start: 20161116, end: 20170405
  2. NUCALA [Suspect]
     Active Substance: MEPOLIZUMAB
     Dosage: UNK
     Route: 042

REACTIONS (13)
  - Pruritus [Recovered/Resolved]
  - Chest discomfort [Recovered/Resolved]
  - Tachypnoea [Unknown]
  - Dyspnoea [Recovered/Resolved]
  - Tachycardia [Unknown]
  - Throat tightness [Unknown]
  - Face oedema [Unknown]
  - Anaphylactic reaction [Recovered/Resolved]
  - Wheezing [Unknown]
  - Cough [Unknown]
  - Urticaria [Recovered/Resolved]
  - Throat irritation [Recovered/Resolved]
  - Angioedema [Unknown]

NARRATIVE: CASE EVENT DATE: 20170405
